FAERS Safety Report 10053701 (Version 1)
Quarter: 2014Q2

REPORT INFORMATION
  Report Type: Report from Study
  Country: AR (occurrence: AR)
  Receive Date: 20140402
  Receipt Date: 20140402
  Transmission Date: 20141212
  Serious: Yes (Death)
  Sender: FDA-Public Use
  Company Number: PHHY2014AR039416

PATIENT
  Sex: Female

DRUGS (2)
  1. EXELON PATCH [Suspect]
     Dosage: 0.5 DF (HALF DOSE OF PATCH 5CM2), DAILY
     Route: 062
  2. TRILEPTAL [Suspect]
     Dosage: 300 MG, DAILY
     Route: 048

REACTIONS (2)
  - Death [Fatal]
  - Wrong technique in drug usage process [Unknown]
